FAERS Safety Report 9788306 (Version 2)
Quarter: 2014Q1

REPORT INFORMATION
  Report Type: Spontaneous
  Country: US (occurrence: US)
  Receive Date: 20131230
  Receipt Date: 20140121
  Transmission Date: 20141002
  Serious: No
  Sender: FDA-Public Use
  Company Number: US-PFIZER INC-2013371197

PATIENT
  Age: 81 Year
  Sex: Female
  Weight: 83.9 kg

DRUGS (1)
  1. METAXALONE [Suspect]
     Dosage: 800 MG, UNK

REACTIONS (1)
  - Somnolence [Unknown]
